FAERS Safety Report 7562312-2 (Version None)
Quarter: 2011Q2

REPORT INFORMATION
  Report Type: 
  Country: None (occurrence: None)
  Receive Date: 20110622
  Receipt Date: 20110609
  Transmission Date: 20111010
  Serious: Yes (Other)
  Sender: FDA-Public Use
  Company Number: CA-JNJFOC-20110605370

PATIENT
  Sex: Female
  Weight: 68 kg

DRUGS (4)
  1. IMURAN [Concomitant]
     Route: 048
  2. MESALAMINE [Concomitant]
     Dosage: 2 TABS DAILY
     Route: 048
  3. SULFASALAZINE [Concomitant]
     Dosage: 4 TABS DAILY
     Route: 048
  4. REMICADE [Suspect]
     Indication: COLITIS ULCERATIVE
     Route: 042
     Dates: start: 20110101

REACTIONS (1)
  - NEPHROLITHIASIS [None]
